FAERS Safety Report 12301023 (Version 1)
Quarter: 2016Q2

REPORT INFORMATION
  Report Type: Spontaneous
  Country: JP (occurrence: JP)
  Receive Date: 20160425
  Receipt Date: 20160425
  Transmission Date: 20160815
  Serious: Yes (Other)
  Sender: FDA-Public Use
  Company Number: JP-BAYER-2016-071154

PATIENT
  Age: 50 Year
  Sex: Female

DRUGS (5)
  1. ACETYLSALICYLIC ACID({=100 MG) [Suspect]
     Active Substance: ASPIRIN
     Dosage: 200 MG, QD
     Route: 048
  2. OZAGREL NA MEIJI [Concomitant]
     Indication: CEREBRAL VASOCONSTRICTION
     Dosage: 160 MG, QD
  3. HEPARIN [Interacting]
     Active Substance: HEPARIN SODIUM
     Dosage: UNK
  4. OZAGREL NA MEIJI [Concomitant]
     Indication: CEREBRAL VASOCONSTRICTION
     Dosage: 40 MG, QD
  5. CILOSTAZOL. [Interacting]
     Active Substance: CILOSTAZOL
     Indication: CEREBRAL VASOCONSTRICTION
     Dosage: 200 MG, QD
     Route: 048

REACTIONS (3)
  - Spinal cord haematoma [None]
  - Cerebral infarction [None]
  - Labelled drug-drug interaction medication error [None]
